FAERS Safety Report 19150463 (Version 2)
Quarter: 2021Q2

REPORT INFORMATION
  Report Type: Spontaneous
  Country: US (occurrence: US)
  Receive Date: 20210418
  Receipt Date: 20210421
  Transmission Date: 20210717
  Serious: Yes (Death)
  Sender: FDA-Public Use
  Company Number: NVSC2021US086768

PATIENT
  Age: 84 Year
  Sex: Male

DRUGS (4)
  1. LUCENTIS [Suspect]
     Active Substance: RANIBIZUMAB
     Dosage: 0.5 MG
     Route: 065
     Dates: start: 20200604
  2. LUCENTIS [Suspect]
     Active Substance: RANIBIZUMAB
     Indication: PRODUCT USED FOR UNKNOWN INDICATION
     Dosage: 0.5 MG
     Route: 065
     Dates: start: 20200227
  3. BEOVU [Suspect]
     Active Substance: BROLUCIZUMAB-DBLL
     Indication: PRODUCT USED FOR UNKNOWN INDICATION
     Dosage: UNK
     Route: 065
     Dates: start: 20200206
  4. LUCENTIS [Suspect]
     Active Substance: RANIBIZUMAB
     Dosage: 0.5 MG
     Route: 065
     Dates: start: 20200507

REACTIONS (1)
  - Death [Fatal]

NARRATIVE: CASE EVENT DATE: 20210210
